FAERS Safety Report 5787263-5 (Version None)
Quarter: 2008Q2

REPORT INFORMATION
  Report Type: 
  Country: None (occurrence: None)
  Receive Date: 20080625
  Receipt Date: 20070907
  Transmission Date: 20081010
  Serious: No
  Sender: FDA-Public Use
  Company Number: US-ASTRAZENECA-2007UW21469

PATIENT
  Age: 62 Year
  Sex: Female
  Weight: 68.9 kg

DRUGS (3)
  1. PULMICORT FLLEXHALER [Suspect]
     Indication: ASTHMA
     Dosage: 2 PUFFS HS
     Route: 055
  2. MICARDIS [Concomitant]
  3. PREMARIN [Concomitant]

REACTIONS (5)
  - ASTHMA [None]
  - BACK PAIN [None]
  - CONTUSION [None]
  - DYSPNOEA [None]
  - SKIN ATROPHY [None]
